FAERS Safety Report 5325070-8 (Version None)
Quarter: 2007Q2

REPORT INFORMATION
  Report Type: 
  Country: None (occurrence: None)
  Receive Date: 20070511
  Receipt Date: 20070511
  Transmission Date: 20071010
  Serious: Yes (Life-Threatening)
  Sender: FDA-Public Use
  Company Number: None

PATIENT
  Age: 51 Year
  Sex: Female
  Weight: 63.5036 kg

DRUGS (2)
  1. ACYCLOVIR [Suspect]
     Indication: HERPES VIRUS INFECTION
     Dosage: 1 2X DAILY PO
     Route: 048
     Dates: start: 19910101, end: 20070509
  2. BENADRYL [Concomitant]

REACTIONS (11)
  - BLOOD URINE PRESENT [None]
  - DYSPHONIA [None]
  - DYSPNOEA [None]
  - HEADACHE [None]
  - JOINT SWELLING [None]
  - NAUSEA [None]
  - PARAESTHESIA [None]
  - PHARYNGEAL OEDEMA [None]
  - SWOLLEN TONGUE [None]
  - URINE OUTPUT DECREASED [None]
  - URTICARIA [None]
